FAERS Safety Report 22598006 (Version 1)
Quarter: 2023Q2

REPORT INFORMATION
  Report Type: Report from Study
  Country: CA (occurrence: CA)
  Receive Date: 20230614
  Receipt Date: 20230614
  Transmission Date: 20230721
  Serious: Yes (Other)
  Sender: FDA-Public Use
  Company Number: CA-SAMSUNG BIOEPIS-SB-2023-15487

PATIENT
  Age: 27 Year
  Sex: Male

DRUGS (6)
  1. HADLIMA [Suspect]
     Active Substance: ADALIMUMAB-BWWD
     Indication: Uveitis
     Dosage: 40 MG/0.8 ML;
     Route: 065
     Dates: start: 20230316
  2. APOMORPHINE [Concomitant]
     Active Substance: APOMORPHINE
     Indication: Product used for unknown indication
     Dosage: UNKNOWN
     Route: 065
  3. CANNABIS SATIVA SUBSP. INDICA TOP [Concomitant]
     Active Substance: CANNABIS SATIVA SUBSP. INDICA TOP
     Indication: Product used for unknown indication
     Dosage: UNKNOWN
     Route: 065
  4. PANTOPRAZOLE [Concomitant]
     Active Substance: PANTOPRAZOLE
     Indication: Product used for unknown indication
     Route: 065
  5. PREDNISONE [Concomitant]
     Active Substance: PREDNISONE
     Indication: Product used for unknown indication
     Dosage: 6 TABLETS
     Route: 065
  6. SIMBRINZA [Concomitant]
     Active Substance: BRIMONIDINE TARTRATE\BRINZOLAMIDE
     Indication: Product used for unknown indication
     Dosage: UNKNOWN DAILY BOTH, OPHTHALMIC
     Route: 065

REACTIONS (4)
  - Immunosuppression [Unknown]
  - Oropharyngeal pain [Not Recovered/Not Resolved]
  - Influenza [Unknown]
  - Pharyngitis streptococcal [Unknown]
